FAERS Safety Report 9324482 (Version 2)
Quarter: 2014Q2

REPORT INFORMATION
  Report Type: Spontaneous
  Country: IT (occurrence: IT)
  Receive Date: 20130603
  Receipt Date: 20140404
  Transmission Date: 20141212
  Serious: Yes (Hospitalization)
  Sender: FDA-Public Use
  Company Number: IT-BRISTOL-MYERS SQUIBB COMPANY-18964882

PATIENT
  Age: 83 Year
  Sex: Male

DRUGS (6)
  1. COUMADIN TABS 5 MG [Suspect]
     Indication: ATRIAL FIBRILLATION
     Route: 048
     Dates: start: 20120430, end: 20130429
  2. PRITORPLUS [Concomitant]
     Dosage: 40/12.5 MG TAB
     Route: 048
  3. CARDICOR [Concomitant]
     Dosage: 1.25 MG TAB
     Route: 048
  4. ALLOPURINOL [Concomitant]
     Dosage: TEVA.?300 MG TAB
     Route: 048
  5. AVODART [Concomitant]
     Dosage: 0.5 MG CAPS
     Route: 048
  6. LASIX [Concomitant]
     Dosage: 25 MG TAB
     Route: 048

REACTIONS (5)
  - Anaemia [Recovered/Resolved]
  - Duodenal ulcer [Recovered/Resolved]
  - Haemorrhage [Recovered/Resolved]
  - Melaena [Recovered/Resolved]
  - Overdose [Unknown]
